FAERS Safety Report 7400878-3 (Version None)
Quarter: 2011Q2

REPORT INFORMATION
  Report Type: 
  Country: None (occurrence: None)
  Receive Date: 20110407
  Receipt Date: 20110323
  Transmission Date: 20111010
  Serious: Yes (Hospitalization)
  Sender: FDA-Public Use
  Company Number: IN-CUBIST-2011S1000000

PATIENT
  Age: 56 Year
  Sex: Male
  Weight: 117 kg

DRUGS (7)
  1. AMLODIPINE BESYLATE [Concomitant]
  2. DALTEPARIN SODIUM [Concomitant]
  3. CUBICIN [Suspect]
     Indication: CELLULITIS
     Route: 042
     Dates: start: 20101225
  4. CEFTAZIDIME [Concomitant]
  5. ZIENAM [Concomitant]
  6. NEXIUM [Concomitant]
  7. LASILACTONE [Concomitant]

REACTIONS (6)
  - DYSPNOEA [None]
  - ERYTHEMA [None]
  - GENERAL PHYSICAL HEALTH DETERIORATION [None]
  - PALPITATIONS [None]
  - PYREXIA [None]
  - CHILLS [None]
